FAERS Safety Report 7330649-8 (Version None)
Quarter: 2011Q1

REPORT INFORMATION
  Report Type: 
  Country: None (occurrence: None)
  Receive Date: 20110304
  Receipt Date: 20110225
  Transmission Date: 20110831
  Serious: Yes (Hospitalization)
  Sender: FDA-Public Use
  Company Number: IT-TEVA-269117ISR

PATIENT
  Sex: Male

DRUGS (2)
  1. DIAZEPAM [Suspect]
     Route: 054
     Dates: start: 20100520, end: 20100520
  2. VALPROATE SODIUM [Concomitant]

REACTIONS (1)
  - SOPOR [None]
